FAERS Safety Report 5092421-1 (Version None)
Quarter: 2006Q3

REPORT INFORMATION
  Report Type: 
  Country: None (occurrence: None)
  Receive Date: 20060825
  Receipt Date: 20060817
  Transmission Date: 20061208
  Serious: Yes (Hospitalization)
  Sender: FDA-Public Use
  Company Number: 163-21880-06080939

PATIENT
  Age: 69 Year
  Sex: Male
  Weight: 88.4 kg

DRUGS (3)
  1. REVLIMID [Suspect]
     Indication: PROSTATE CANCER
     Dosage: ORAL
     Route: 048
     Dates: start: 20060811, end: 20060816
  2. CENTRUM SILVER (CENTRUM SILVER) (TABLETS) [Concomitant]
  3. METROGEL (METRONIDAZOLE) (CREAM) [Concomitant]

REACTIONS (1)
  - APPENDICITIS [None]
